FAERS Safety Report 8711289 (Version 2)
Quarter: 2012Q4

REPORT INFORMATION
  Report Type: 
  Country: DE (occurrence: DE)
  Receive Date: 20120807
  Receipt Date: 20120928
  Transmission Date: 20130627
  Serious: Yes (Other)
  Sender: FDA-Public Use
  Company Number: DE-ROCHE-1097951

PATIENT
  Age: 67 Year
  Sex: Male

DRUGS (3)
  1. LUCENTIS [Suspect]
     Indication: RETINAL VEIN OCCLUSION
     Route: 050
     Dates: start: 20120606
  2. LUCENTIS [Suspect]
     Route: 065
     Dates: start: 201206
  3. LUCENTIS [Suspect]
     Route: 050
     Dates: start: 20120712

REACTIONS (5)
  - Retinal ischaemia [Not Recovered/Not Resolved]
  - Condition aggravated [Not Recovered/Not Resolved]
  - Macular oedema [Not Recovered/Not Resolved]
  - Retinal haemorrhage [Unknown]
  - Retinal detachment [Unknown]
